FAERS Safety Report 10759855 (Version 1)
Quarter: 2015Q1

REPORT INFORMATION
  Report Type: Other
  Country: GB (occurrence: GB)
  Receive Date: 20150203
  Receipt Date: 20150203
  Transmission Date: 20150721
  Serious: Yes (Other)
  Sender: FDA-Public Use
  Company Number: GB-MYLANLABS-2015M1001909

PATIENT

DRUGS (2)
  1. DENOSUMAB [Concomitant]
     Active Substance: DENOSUMAB
     Dosage: UNK
  2. CAPECITABINE. [Suspect]
     Active Substance: CAPECITABINE
     Indication: METASTASIS
     Dosage: 2000 MG, UNK
     Route: 048
     Dates: start: 201406

REACTIONS (2)
  - Nail discolouration [Not Recovered/Not Resolved]
  - Onychomadesis [Not Recovered/Not Resolved]
